FAERS Safety Report 11790764 (Version 1)
Quarter: 2015Q4

REPORT INFORMATION
  Report Type: Spontaneous
  Country: US (occurrence: US)
  Receive Date: 20151201
  Receipt Date: 20151201
  Transmission Date: 20160305
  Serious: No
  Sender: FDA-Public Use
  Company Number: US-BAYER-2015-479701

PATIENT
  Age: 79 Year
  Sex: Female
  Weight: 60.32 kg

DRUGS (6)
  1. AMBIEN [Concomitant]
     Active Substance: ZOLPIDEM TARTRATE
  2. LEVOTHYROXINE. [Concomitant]
     Active Substance: LEVOTHYROXINE
  3. AMITRIPTYLINE [Concomitant]
     Active Substance: AMITRIPTYLINE
  4. ALEVE [Suspect]
     Active Substance: NAPROXEN SODIUM
     Indication: PAIN
     Dosage: 1 DF, QD
     Route: 048
  5. FISH OIL [Concomitant]
     Active Substance: FISH OIL
  6. CENTRUM [MINERALS NOS,VITAMINS NOS] [Concomitant]

REACTIONS (2)
  - Product use issue [None]
  - Insomnia [Recovered/Resolved]

NARRATIVE: CASE EVENT DATE: 20151130
